FAERS Safety Report 6963922-3 (Version None)
Quarter: 2010Q3

REPORT INFORMATION
  Report Type: 
  Country: None (occurrence: None)
  Receive Date: 20100902
  Receipt Date: 20100827
  Transmission Date: 20110219
  Serious: Yes (Death)
  Sender: FDA-Public Use
  Company Number: NL-AMGEN-QUU434097

PATIENT
  Age: 65 Year
  Sex: Female
  Weight: 60 kg

DRUGS (2)
  1. ENBREL [Suspect]
     Indication: RHEUMATOID ARTHRITIS
     Route: 058
     Dates: start: 20100426, end: 20100601
  2. INDOMETHACIN [Concomitant]
     Indication: RHEUMATOID ARTHRITIS

REACTIONS (4)
  - ADENOCARCINOMA [None]
  - DYSPNOEA [None]
  - METASTATIC NEOPLASM [None]
  - PANCREATIC CARCINOMA METASTATIC [None]
